FAERS Safety Report 6704378-5 (Version None)
Quarter: 2010Q2

REPORT INFORMATION
  Report Type: 
  Country: None (occurrence: None)
  Receive Date: 20100430
  Receipt Date: 20100420
  Transmission Date: 20101027
  Serious: Yes (Hospitalization)
  Sender: FDA-Public Use
  Company Number: TR-ELI_LILLY_AND_COMPANY-TR201004005427

PATIENT
  Sex: Male
  Weight: 63.3 kg

DRUGS (5)
  1. PEMETREXED [Suspect]
     Indication: NON-SMALL CELL LUNG CANCER
     Dosage: 500 MG/M2, DAY ONE EVERY 21 DAYS
     Route: 042
     Dates: start: 20100406
  2. CISPLATIN [Suspect]
     Indication: NON-SMALL CELL LUNG CANCER
     Dosage: 75 MG/M2, DAY ONE EVERY 21 DAYS
     Route: 042
     Dates: start: 20100406
  3. FOLIC ACID [Concomitant]
     Dates: start: 20100331
  4. VITAMIN B-12 [Concomitant]
     Dates: start: 20100331
  5. DEXAMETHASONE [Concomitant]
     Dates: start: 20100405, end: 20100407

REACTIONS (1)
  - HEMIPLEGIA [None]
